FAERS Safety Report 7415137-2 (Version None)
Quarter: 2011Q2

REPORT INFORMATION
  Report Type: 
  Country: None (occurrence: None)
  Receive Date: 20110414
  Receipt Date: 20110404
  Transmission Date: 20111010
  Serious: Yes (Hospitalization)
  Sender: FDA-Public Use
  Company Number: PHFR2011GB02361

PATIENT

DRUGS (2)
  1. SANDOSTATIN LAR [Suspect]
     Indication: STOMA CARE
     Dosage: 30 MG, UNK
  2. SANDOSTATIN [Suspect]
     Route: 058

REACTIONS (1)
  - INFECTION [None]
